FAERS Safety Report 10345800 (Version 1)
Quarter: 2014Q3

REPORT INFORMATION
  Report Type: Spontaneous
  Country: IN (occurrence: IN)
  Receive Date: 20140728
  Receipt Date: 20140728
  Transmission Date: 20150326
  Serious: Yes (Other)
  Sender: FDA-Public Use
  Company Number: PHHY2014IN090732

PATIENT
  Age: 36 Year
  Sex: Female

DRUGS (2)
  1. TRAMADOL+PARACETAMOL [Suspect]
     Active Substance: ACETAMINOPHEN\TRAMADOL
     Indication: BACK PAIN
     Dosage: 1 DF, BID
  2. FLUOXETINE [Suspect]
     Active Substance: FLUOXETINE\FLUOXETINE HYDROCHLORIDE
     Indication: BACK PAIN
     Dosage: 20 MG, UNK

REACTIONS (10)
  - Phonophobia [Recovered/Resolved]
  - Tachycardia [Recovered/Resolved]
  - Photophobia [Recovered/Resolved]
  - Serotonin syndrome [Recovered/Resolved]
  - Nausea [Recovered/Resolved]
  - Hyperreflexia [Recovered/Resolved]
  - Body temperature increased [Recovered/Resolved]
  - Headache [Recovered/Resolved]
  - Mydriasis [Recovered/Resolved]
  - Postural tremor [Recovered/Resolved]
